FAERS Safety Report 17863572 (Version 1)
Quarter: 2020Q2

REPORT INFORMATION
  Report Type: Report from Study
  Country: None (occurrence: DE)
  Receive Date: 20200604
  Receipt Date: 20200604
  Transmission Date: 20200714
  Serious: Yes (Hospitalization, Other)
  Sender: FDA-Public Use
  Company Number: DE-ABBVIE-20K-062-3428304-00

PATIENT
  Age: 67 Year
  Sex: Female
  Weight: 105 kg

DRUGS (1)
  1. ADALIMUMAB [Suspect]
     Active Substance: ADALIMUMAB
     Indication: PRODUCT USED FOR UNKNOWN INDICATION
     Route: 058

REACTIONS (4)
  - Cardiac failure [Unknown]
  - Coronary artery disease [Unknown]
  - Malignant neoplasm of unknown primary site [Unknown]
  - Myocardial infarction [Unknown]

NARRATIVE: CASE EVENT DATE: 201802
